FAERS Safety Report 9479346 (Version 2)
Quarter: 2013Q4

REPORT INFORMATION
  Report Type: Spontaneous
  Country: US (occurrence: US)
  Receive Date: 20130827
  Receipt Date: 20131003
  Transmission Date: 20140711
  Serious: No
  Sender: FDA-Public Use
  Company Number: US-PFIZER INC-2013244308

PATIENT
  Age: 5 Month
  Sex: Male
  Weight: 6.8 kg

DRUGS (1)
  1. INFANT ADVIL CONCENTRATED DROPS [Suspect]
     Indication: TEETHING
     Dosage: UNK, THREE TIMES A DAY BY TAKING EVERY 8 HOURS
     Route: 048
     Dates: start: 20130814, end: 20130815

REACTIONS (3)
  - Drug administered to patient of inappropriate age [Unknown]
  - Drug ineffective [Unknown]
  - Discomfort [Unknown]
